FAERS Safety Report 22018619 (Version 2)
Quarter: 2023Q1

REPORT INFORMATION
  Report Type: Spontaneous
  Country: US (occurrence: US)
  Receive Date: 20230222
  Receipt Date: 20230324
  Transmission Date: 20230418
  Serious: No
  Sender: FDA-Public Use
  Company Number: US-HETERO-HET2023US00341

PATIENT
  Age: 70 Year
  Sex: Female
  Weight: 77 kg

DRUGS (2)
  1. LEVOFLOXACIN [Suspect]
     Active Substance: LEVOFLOXACIN
     Indication: Urinary tract infection
     Dosage: 750 MILLIGRAM, AFTER DINNER AT ONCE A DAY
     Route: 048
     Dates: start: 20221221, end: 20221225
  2. TIMOLOL [Concomitant]
     Active Substance: TIMOLOL
     Indication: Product used for unknown indication
     Dosage: UNK, EVERY MORNING AND NIGHT
     Route: 065

REACTIONS (4)
  - Headache [Recovered/Resolved]
  - Nausea [Recovered/Resolved]
  - Dizziness [Recovered/Resolved]
  - Arthralgia [Not Recovered/Not Resolved]

NARRATIVE: CASE EVENT DATE: 20221224
